FAERS Safety Report 18603834 (Version 1)
Quarter: 2020Q4

REPORT INFORMATION
  Report Type: Spontaneous
  Country: US (occurrence: US)
  Receive Date: 20201210
  Receipt Date: 20201210
  Transmission Date: 20210114
  Serious: Yes (Death)
  Sender: FDA-Public Use
  Company Number: None

PATIENT
  Age: 65 Year
  Sex: Male

DRUGS (10)
  1. ELIQUIS [Concomitant]
     Active Substance: APIXABAN
  2. LOSARTAN POT [Concomitant]
     Active Substance: LOSARTAN POTASSIUM
  3. SERTRALINE [Concomitant]
     Active Substance: SERTRALINE HYDROCHLORIDE
  4. POT CL MICRO ER [Concomitant]
  5. DILTIAZEM. [Concomitant]
     Active Substance: DILTIAZEM
  6. FUROSEMIDE. [Concomitant]
     Active Substance: FUROSEMIDE
  7. SIMVASTATIN. [Concomitant]
     Active Substance: SIMVASTATIN
  8. DOFETILIDE 500MCG CAP [Suspect]
     Active Substance: DOFETILIDE
     Indication: PRODUCT USED FOR UNKNOWN INDICATION
     Route: 048
     Dates: start: 20191022, end: 20201128
  9. DIAZEPAM. [Concomitant]
     Active Substance: DIAZEPAM
  10. GABAPENTIN. [Concomitant]
     Active Substance: GABAPENTIN

REACTIONS (1)
  - Death [None]

NARRATIVE: CASE EVENT DATE: 20201128
